FAERS Safety Report 14400476 (Version 3)
Quarter: 2018Q3

REPORT INFORMATION
  Report Type: Spontaneous
  Country: US (occurrence: US)
  Receive Date: 20180117
  Receipt Date: 20180710
  Transmission Date: 20181010
  Serious: Yes (Other)
  Sender: FDA-Public Use
  Company Number: US-ENDO PHARMACEUTICALS INC-2017-003625

PATIENT
  Sex: Female

DRUGS (9)
  1. HYDROCODONE [Suspect]
     Active Substance: HYDROCODONE
     Indication: DRUG ABUSE
     Dosage: UNK UNKNOWN, UNKNOWN
     Route: 065
  2. OPANA [Suspect]
     Active Substance: OXYMORPHONE HYDROCHLORIDE
     Indication: DRUG ABUSE
     Dosage: UNK UNKNOWN, UNKNOWN
     Route: 065
  3. PERCOCET [Suspect]
     Active Substance: ACETAMINOPHEN\OXYCODONE HYDROCHLORIDE
     Indication: DRUG ABUSE
     Dosage: UNK UNKNOWN, UNKNOWN
     Route: 065
  4. OPANA ER [Suspect]
     Active Substance: OXYMORPHONE HYDROCHLORIDE
     Indication: DRUG ABUSE
     Dosage: UNK UNKNOWN, UNKNOWN
     Route: 065
  5. MORPHINE SULFATE ER [Suspect]
     Active Substance: MORPHINE SULFATE
     Indication: DRUG ABUSE
     Dosage: UNK UNKNOWN, UNKNOWN
     Route: 065
  6. OXYCODONE HYDROCHLORIDE. [Suspect]
     Active Substance: OXYCODONE HYDROCHLORIDE
     Indication: DRUG ABUSE
     Dosage: UNK UNKNOWN, UNKNOWN
     Route: 065
  7. OXYCONTIN [Suspect]
     Active Substance: OXYCODONE HYDROCHLORIDE
     Indication: DRUG ABUSE
     Dosage: UNK UNKNOWN, UNKNOWN
     Route: 065
  8. OXYMORPHONE EXTENDED RELEASE [Suspect]
     Active Substance: OXYMORPHONE
     Indication: DRUG ABUSE
     Dosage: UNK UNKNOWN, UNKNOWN
     Route: 065
  9. ROXICODONE [Suspect]
     Active Substance: OXYCODONE HYDROCHLORIDE
     Indication: DRUG ABUSE
     Dosage: UNK UNKNOWN, UNKNOWN
     Route: 065

REACTIONS (4)
  - Drug dependence [Unknown]
  - Drug abuser [Unknown]
  - Drug withdrawal syndrome [Unknown]
  - Exposure during pregnancy [Unknown]
